FAERS Safety Report 16875478 (Version 2)
Quarter: 2019Q4

REPORT INFORMATION
  Report Type: Spontaneous
  Country: US (occurrence: US)
  Receive Date: 20191002
  Receipt Date: 20191113
  Transmission Date: 20200122
  Serious: Yes (Other)
  Sender: FDA-Public Use
  Company Number: US-AUROBINDO-AUR-APL-2019-062193

PATIENT
  Sex: Female
  Weight: 76.2 kg

DRUGS (1)
  1. LOSARTAN POTASSIUM TABLETS USP 50MG [Suspect]
     Active Substance: LOSARTAN POTASSIUM
     Indication: PRODUCT USED FOR UNKNOWN INDICATION
     Dosage: UNK, OVER YEAR AGO
     Route: 065

REACTIONS (5)
  - Feeling abnormal [Unknown]
  - Neck pain [Unknown]
  - Product substitution issue [Unknown]
  - Back pain [Unknown]
  - Hypertension [Unknown]
